FAERS Safety Report 22532082 (Version 1)
Quarter: 2023Q2

REPORT INFORMATION
  Report Type: Spontaneous
  Country: US (occurrence: None)
  Receive Date: 20230606
  Receipt Date: 20230606
  Transmission Date: 20230721
  Serious: No
  Sender: FDA-Public Use
  Company Number: None

PATIENT
  Sex: Female

DRUGS (4)
  1. TREPROSTINIL [Suspect]
     Active Substance: TREPROSTINIL
     Indication: Pulmonary arterial hypertension
     Dosage: OTHER QUANTITY : 58.5NG/KG/MIN;?OTHER FREQUENCY : CONTINUOUS;?
     Route: 058
     Dates: start: 202110
  2. TREPROSTINIL [Suspect]
     Active Substance: TREPROSTINIL
  3. AMBRISENTAN [Suspect]
     Active Substance: AMBRISENTAN
  4. SILDENAFIL [Suspect]
     Active Substance: SILDENAFIL

REACTIONS (6)
  - Arthralgia [None]
  - Drug delivery system malfunction [None]
  - Device alarm issue [None]
  - Device leakage [None]
  - Dyspnoea [None]
  - Drug dose omission by device [None]

NARRATIVE: CASE EVENT DATE: 20230604
